FAERS Safety Report 25408879 (Version 1)
Quarter: 2025Q2

REPORT INFORMATION
  Report Type: Spontaneous
  Country: NL (occurrence: NL)
  Receive Date: 20250607
  Receipt Date: 20250607
  Transmission Date: 20250716
  Serious: Yes (Other)
  Sender: AUROBINDO
  Company Number: NL-LRB-01059986

PATIENT
  Age: 67 Year
  Sex: Female
  Weight: 77 kg

DRUGS (1)
  1. SOTALOL HYDROCHLORIDE [Suspect]
     Active Substance: SOTALOL HYDROCHLORIDE
     Indication: Atrial fibrillation
     Dosage: 40 MILLIGRAM, TWO TIMES A DAY (1 PIECE 2X PER DAY)
     Route: 048
     Dates: start: 20250110, end: 20250117

REACTIONS (2)
  - Atrial fibrillation [Recovered/Resolved]
  - Depression [Recovered/Resolved]
